FAERS Safety Report 7457722-8 (Version None)
Quarter: 2011Q2

REPORT INFORMATION
  Report Type: 
  Country: None (occurrence: None)
  Receive Date: 20110504
  Receipt Date: 20110426
  Transmission Date: 20111010
  Serious: Yes (Other)
  Sender: FDA-Public Use
  Company Number: US-ROCHE-743246

PATIENT
  Sex: Female
  Weight: 53.1 kg

DRUGS (2)
  1. ACCUTANE [Suspect]
     Indication: ACNE
     Route: 065
     Dates: start: 19880101, end: 19880601
  2. ACCUTANE [Suspect]
     Route: 065
     Dates: start: 19890101

REACTIONS (5)
  - CROHN'S DISEASE [None]
  - ANXIETY [None]
  - RECTAL POLYP [None]
  - GASTROINTESTINAL INJURY [None]
  - DEPRESSION [None]
